FAERS Safety Report 9484129 (Version 1)
Quarter: 2013Q3

REPORT INFORMATION
  Report Type: Spontaneous
  Country: CA (occurrence: CA)
  Receive Date: 20130828
  Receipt Date: 20130828
  Transmission Date: 20140515
  Serious: Yes (Other)
  Sender: FDA-Public Use
  Company Number: CA-AMGEN-KDL381424

PATIENT
  Age: 51 Year
  Sex: Male
  Weight: 70.4 kg

DRUGS (1)
  1. ENBREL [Suspect]
     Indication: RHEUMATOID ARTHRITIS
     Dosage: 25 MG, 2 TIMES/WK
     Route: 058
     Dates: start: 20040820, end: 2007

REACTIONS (3)
  - Pulmonary mass [Recovered/Resolved]
  - Adverse drug reaction [Recovered/Resolved]
  - Pneumonia [Recovered/Resolved]
